FAERS Safety Report 20430886 (Version 1)
Quarter: 2022Q1

REPORT INFORMATION
  Report Type: Spontaneous
  Country: US (occurrence: US)
  Receive Date: 20220204
  Receipt Date: 20220204
  Transmission Date: 20220423
  Serious: No
  Sender: FDA-Public Use
  Company Number: US-OYSTER POINT PHARMA, INC.-2021OYS00083

PATIENT

DRUGS (4)
  1. TYRVAYA [Suspect]
     Active Substance: VARENICLINE TARTRATE
  2. UNSPECIFIED INGREDIENT [Concomitant]
     Active Substance: UNSPECIFIED INGREDIENT
  3. UNSPECIFIED DROP #1 [Concomitant]
  4. UNSPECIFIED DROP #2 [Concomitant]

REACTIONS (3)
  - Headache [Unknown]
  - Chest pain [Unknown]
  - Unevaluable event [Unknown]
